FAERS Safety Report 18773848 (Version 3)
Quarter: 2021Q3

REPORT INFORMATION
  Report Type: Spontaneous
  Country: DE (occurrence: DE)
  Receive Date: 20210122
  Receipt Date: 20210930
  Transmission Date: 20211014
  Serious: Yes (Other)
  Sender: FDA-Public Use
  Company Number: DE-AMGEN-DEUSP2021009634

PATIENT
  Age: 50 Year
  Sex: Female

DRUGS (5)
  1. ADALIMUMAB [Suspect]
     Active Substance: ADALIMUMAB
     Indication: HIDRADENITIS
     Dosage: 40 MILLIGRAM
     Route: 058
  2. RIFAMPICIN [Concomitant]
     Active Substance: RIFAMPIN
  3. DOXYCYCLINE. [Concomitant]
     Active Substance: DOXYCYCLINE
  4. CLINDAMYCIN. [Concomitant]
     Active Substance: CLINDAMYCIN
  5. ISOTRETINOIN. [Concomitant]
     Active Substance: ISOTRETINOIN

REACTIONS (4)
  - Pyoderma gangrenosum [Recovering/Resolving]
  - Drug ineffective [Unknown]
  - Synovitis [Unknown]
  - Psoriatic arthropathy [Recovering/Resolving]
